FAERS Safety Report 9368862 (Version 7)
Quarter: 2013Q3

REPORT INFORMATION
  Report Type: Report from Study
  Country: DE (occurrence: DE)
  Receive Date: 20130626
  Receipt Date: 20130912
  Transmission Date: 20140515
  Serious: Yes (Hospitalization)
  Sender: FDA-Public Use
  Company Number: DE-ROCHE-1240381

PATIENT
  Sex: Female

DRUGS (19)
  1. RITUXIMAB [Suspect]
     Indication: B-CELL LYMPHOMA
     Route: 042
     Dates: start: 20130524
  2. FILGRASTIM [Suspect]
     Indication: B-CELL LYMPHOMA
     Dosage: 48 IE, 1X
     Route: 058
     Dates: start: 20130606
  3. PEGFILGRASTIM [Suspect]
     Indication: B-CELL LYMPHOMA
     Route: 058
     Dates: start: 20130614
  4. PEGFILGRASTIM [Suspect]
     Route: 058
     Dates: start: 20130529
  5. CYCLOPHOSPHAMIDE [Suspect]
     Indication: B-CELL LYMPHOMA
     Route: 042
     Dates: start: 20130529
  6. DOXORUBICINE [Suspect]
     Indication: B-CELL LYMPHOMA
     Route: 042
     Dates: start: 20130529
  7. LIPOSOMAL VINCRISTINE [Suspect]
     Indication: B-CELL LYMPHOMA
     Route: 042
     Dates: start: 20130529
  8. PREDNISONE [Suspect]
     Indication: B-CELL LYMPHOMA
     Dosage: INTRAVENOUS ON DAY 1, ORAL SINCE DAY 4/EACH CYCLE
     Route: 048
     Dates: start: 20130529
  9. ACICLOVIR [Concomitant]
     Indication: PROPHYLAXIS
     Route: 048
  10. CIPROFLOXACIN [Concomitant]
     Indication: PROPHYLAXIS
     Route: 048
  11. POLYETHYLENE GLYCOL [Concomitant]
     Indication: CONSTIPATION
     Dosage: AS NEEDED
     Route: 048
  12. ALLOPURINOL [Concomitant]
     Indication: HYPERURICAEMIA
     Route: 048
  13. SALVIA OFFICINALIS [Concomitant]
     Indication: HYPERHIDROSIS
     Route: 048
  14. ENOXAPARIN SODIUM [Concomitant]
     Route: 065
  15. VALSARTAN [Concomitant]
     Indication: HYPERTENSION
     Dosage: 1X160/25MG PER DAY
     Route: 048
  16. SULFAMETHOXAZOLE/TRIMETHOPRIM [Concomitant]
     Dosage: 160+80MG
     Route: 048
  17. SIMVASTATIN [Concomitant]
     Indication: HYPERCHOLESTEROLAEMIA
     Route: 048
  18. FORMOTEROL FUMARATE [Concomitant]
     Indication: BRONCHOSPASM
     Route: 065
     Dates: start: 20130815
  19. TIOTROPIUM BROMIDE [Concomitant]
     Indication: BRONCHOSPASM
     Route: 065
     Dates: start: 20130815

REACTIONS (3)
  - Circulatory collapse [Recovered/Resolved]
  - Syncope [Recovered/Resolved]
  - Gait disturbance [Unknown]
